FAERS Safety Report 5804237-6 (Version None)
Quarter: 2008Q3

REPORT INFORMATION
  Report Type: 
  Country: None (occurrence: None)
  Receive Date: 20080707
  Receipt Date: 20080623
  Transmission Date: 20090109
  Serious: Yes (Other)
  Sender: FDA-Public Use
  Company Number: 2008AL007742

PATIENT
  Age: 56 Year
  Sex: Female

DRUGS (2)
  1. TRAMADOL HCL [Suspect]
     Indication: PAIN
     Dosage: 50 MG; X1; PO
     Route: 048
     Dates: start: 20080427, end: 20080428
  2. GEMCITABINE [Concomitant]

REACTIONS (3)
  - CEREBROVASCULAR ACCIDENT [None]
  - DYSPHAGIA [None]
  - PARESIS CRANIAL NERVE [None]
